FAERS Safety Report 9911625 (Version 2)
Quarter: 2014Q1

REPORT INFORMATION
  Report Type: Spontaneous
  Country: US (occurrence: US)
  Receive Date: 20140219
  Receipt Date: 20140224
  Transmission Date: 20141002
  Serious: Yes (Hospitalization)
  Sender: FDA-Public Use
  Company Number: PHHY2014US017566

PATIENT
  Age: 68 Year
  Sex: Male

DRUGS (1)
  1. CO-TRIMOXAZOLE [Suspect]

REACTIONS (2)
  - Oral candidiasis [Recovered/Resolved]
  - Agranulocytosis [Recovered/Resolved]
